FAERS Safety Report 19160425 (Version 1)
Quarter: 2021Q2

REPORT INFORMATION
  Report Type: Spontaneous
  Country: BR (occurrence: BR)
  Receive Date: 20210420
  Receipt Date: 20210420
  Transmission Date: 20210717
  Serious: Yes (Other)
  Sender: FDA-Public Use
  Company Number: BR-TAKEDA-2021TUS024741

PATIENT
  Age: 50 Year
  Sex: Female

DRUGS (1)
  1. BRIGATINIB [Suspect]
     Active Substance: BRIGATINIB
     Indication: LUNG ADENOCARCINOMA
     Dosage: 180 MILLIGRAM, QD
     Route: 048
     Dates: start: 20200220

REACTIONS (8)
  - Osteosarcoma [Unknown]
  - Carbohydrate antigen 19-9 increased [Unknown]
  - Myalgia [Not Recovered/Not Resolved]
  - Blood creatine phosphokinase increased [Unknown]
  - Back pain [Not Recovered/Not Resolved]
  - Osteoarthropathy [Unknown]
  - Bone lesion [Unknown]
  - Dyspepsia [Unknown]

NARRATIVE: CASE EVENT DATE: 202005
